FAERS Safety Report 12113752 (Version 2)
Quarter: 2016Q1

REPORT INFORMATION
  Report Type: Spontaneous
  Country: US (occurrence: US)
  Receive Date: 20160225
  Receipt Date: 20160311
  Transmission Date: 20160526
  Serious: Yes (Hospitalization)
  Sender: FDA-Public Use
  Company Number: US-BEH-2016058956

PATIENT
  Age: 50 Year
  Sex: Male
  Weight: 94 kg

DRUGS (24)
  1. ONDANSETRON [Concomitant]
     Active Substance: ONDANSETRON
  2. NEOSPORIN [Concomitant]
     Active Substance: BACITRACIN ZINC\NEOMYCIN SULFATE\POLYMYXIN B SULFATE
  3. EPIPEN [Concomitant]
     Active Substance: EPINEPHRINE
  4. NORMAL SALINE [Concomitant]
     Active Substance: SODIUM CHLORIDE
  5. LANTUS [Concomitant]
     Active Substance: INSULIN GLARGINE
  6. DIAZEPAM. [Concomitant]
     Active Substance: DIAZEPAM
  7. LYRICA [Concomitant]
     Active Substance: PREGABALIN
  8. MIRALAX [Concomitant]
     Active Substance: POLYETHYLENE GLYCOL 3350
  9. ROBAXIN [Concomitant]
     Active Substance: METHOCARBAMOL
  10. HUMALOG [Concomitant]
     Active Substance: INSULIN LISPRO
  11. FERROUS SULFATE [Concomitant]
     Active Substance: FERROUS SULFATE\FERROUS SULFATE, DRIED
  12. JANTOVEN [Concomitant]
     Active Substance: WARFARIN SODIUM
  13. ACETAMINOPHEN. [Concomitant]
     Active Substance: ACETAMINOPHEN
  14. SODIUM CHLORIDE. [Concomitant]
     Active Substance: SODIUM CHLORIDE
  15. METOCLOPRAMIDE. [Concomitant]
     Active Substance: METOCLOPRAMIDE
  16. ANTIFUNGAL CREAM [Concomitant]
     Active Substance: MICONAZOLE NITRATE
  17. GLYCERIN ROSE WATER [Concomitant]
  18. NORCO [Concomitant]
     Active Substance: ACETAMINOPHEN\HYDROCODONE BITARTRATE
  19. COLACE [Concomitant]
     Active Substance: DOCUSATE SODIUM
  20. TRAMADOL. [Concomitant]
     Active Substance: TRAMADOL
  21. OXYCONTIN [Concomitant]
     Active Substance: OXYCODONE HYDROCHLORIDE
  22. PRIVIGEN [Suspect]
     Active Substance: HUMAN IMMUNOGLOBULIN G
     Indication: POLYNEUROPATHY
     Route: 042
     Dates: start: 20160210
  23. DIPHENHYDRAMINE. [Concomitant]
     Active Substance: DIPHENHYDRAMINE
  24. PROTONIX [Concomitant]
     Active Substance: PANTOPRAZOLE SODIUM

REACTIONS (4)
  - Hospitalisation [Unknown]
  - Postoperative wound infection [Unknown]
  - Night sweats [Unknown]
  - Pyrexia [Unknown]

NARRATIVE: CASE EVENT DATE: 20160211
